FAERS Safety Report 11788666 (Version 2)
Quarter: 2016Q1

REPORT INFORMATION
  Report Type: Spontaneous
  Country: GB (occurrence: GB)
  Receive Date: 20151201
  Receipt Date: 20160314
  Transmission Date: 20160525
  Serious: Yes (Hospitalization)
  Sender: FDA-Public Use
  Company Number: GB-ACCORD-035739

PATIENT
  Age: 69 Year
  Sex: Male

DRUGS (12)
  1. TRAMADOL. [Concomitant]
     Active Substance: TRAMADOL
  2. CLOPIDOGREL [Suspect]
     Active Substance: CLOPIDOGREL BISULFATE
     Indication: PRODUCT USED FOR UNKNOWN INDICATION
  3. FUROSEMIDE. [Suspect]
     Active Substance: FUROSEMIDE
     Indication: PRODUCT USED FOR UNKNOWN INDICATION
     Dates: end: 20151101
  4. PARACETAMOL [Concomitant]
     Active Substance: ACETAMINOPHEN
  5. IRON [Suspect]
     Active Substance: IRON
     Indication: HAEMOGLOBIN DECREASED
  6. DEXAMETHASONE. [Concomitant]
     Active Substance: DEXAMETHASONE
  7. GOSERELIN/GOSERELIN ACETATE [Concomitant]
  8. TAMSULOSIN/TAMSULOSIN HYDROCHLORIDE [Concomitant]
     Dosage: MODIFIED RELEASE
  9. ASPIRIN. [Suspect]
     Active Substance: ASPIRIN
     Indication: PRODUCT USED FOR UNKNOWN INDICATION
     Dates: end: 20151101
  10. ATORVASTATIN [Suspect]
     Active Substance: ATORVASTATIN
     Indication: PRODUCT USED FOR UNKNOWN INDICATION
  11. BUTRANS [Concomitant]
     Active Substance: BUPRENORPHINE
     Dosage: 5 MICROGRAMS/HOUR
  12. LANSOPRAZOLE. [Concomitant]
     Active Substance: LANSOPRAZOLE

REACTIONS (3)
  - Faeces discoloured [Recovered/Resolved]
  - Gastric haemorrhage [Recovering/Resolving]
  - Fatigue [Recovering/Resolving]

NARRATIVE: CASE EVENT DATE: 20151101
